FAERS Safety Report 9884535 (Version 1)
Quarter: 2014Q1

REPORT INFORMATION
  Report Type: Spontaneous
  Country: US (occurrence: None)
  Receive Date: 20140207
  Receipt Date: 20140207
  Transmission Date: 20141002
  Serious: No
  Sender: FDA-Public Use
  Company Number: None

PATIENT
  Age: 35 Year
  Sex: Female
  Weight: 90.72 kg

DRUGS (1)
  1. THINOGENICS [Suspect]
     Indication: WEIGHT CONTROL
     Dosage: 4 TO 5 MONTHS 1 DOSE ONCE DAILY TAKEN BY MOUTH
     Route: 048

REACTIONS (2)
  - Heart rate increased [None]
  - Dyspnoea [None]
